FAERS Safety Report 9667715 (Version 2)
Quarter: 2013Q4

REPORT INFORMATION
  Report Type: Spontaneous
  Country: FR (occurrence: FR)
  Receive Date: 20131104
  Receipt Date: 20131115
  Transmission Date: 20140711
  Serious: Yes (Hospitalization, Other)
  Sender: FDA-Public Use
  Company Number: FR-PFIZER INC-2013308170

PATIENT
  Age: 50 Year
  Sex: Female

DRUGS (13)
  1. STEDIRIL [Suspect]
     Dosage: UNK
     Route: 048
     Dates: start: 1973, end: 1979
  2. ISOMERIDE [Suspect]
     Dosage: 30 MG, 1X/DAY
     Route: 048
     Dates: start: 199302, end: 199403
  3. PREFAMONE [Suspect]
     Dosage: UNK
     Route: 048
     Dates: start: 1983
  4. DERINOX [Suspect]
     Dosage: TRANSIENT EXPOSURE
  5. XANAX [Concomitant]
     Dosage: 1 DF, 1X/DAY (BEDTIME)
     Dates: start: 1988, end: 1988
  6. ASPEGIC [Concomitant]
     Indication: NASOPHARYNGITIS
  7. ASPEGIC [Concomitant]
     Indication: HEADACHE
  8. DOLIPRANE [Concomitant]
     Indication: NASOPHARYNGITIS
  9. DOLIPRANE [Concomitant]
     Indication: HEADACHE
  10. ALDALIX [Concomitant]
     Indication: HYPERTENSION
     Dosage: UNK
     Dates: start: 1980, end: 199402
  11. AVLOCARDYL [Concomitant]
     Indication: HYPERTENSION
     Dosage: 40 MG, 3X/DAY
     Dates: start: 199402
  12. ZESTORETIC [Concomitant]
     Indication: HYPERTENSION
     Dosage: 1 DF, 1X/DAY
     Dates: start: 1994
  13. ADALATE [Concomitant]

REACTIONS (1)
  - Pulmonary arterial hypertension [Not Recovered/Not Resolved]
